FAERS Safety Report 24195586 (Version 1)
Quarter: 2024Q3

REPORT INFORMATION
  Report Type: Spontaneous
  Country: KR (occurrence: KR)
  Receive Date: 20240809
  Receipt Date: 20240809
  Transmission Date: 20241016
  Serious: Yes (Death, Other)
  Sender: MALLINCKRODT
  Company Number: KR-MALLINCKRODT-MNK202405006

PATIENT
  Age: 0 Year
  Weight: 0.63 kg

DRUGS (1)
  1. NITRIC OXIDE [Suspect]
     Active Substance: NITRIC OXIDE
     Indication: Newborn persistent pulmonary hypertension
     Dosage: 20 PPM
     Route: 055
     Dates: start: 20240802, end: 20240805

REACTIONS (6)
  - Intraventricular haemorrhage neonatal [Fatal]
  - Disseminated intravascular coagulation [Fatal]
  - Bacterial sepsis [Fatal]
  - Newborn persistent pulmonary hypertension [Fatal]
  - Seizure [Unknown]
  - Heart rate decreased [Unknown]

NARRATIVE: CASE EVENT DATE: 20240801
